FAERS Safety Report 8445597 (Version 3)
Quarter: 2012Q4

REPORT INFORMATION
  Report Type: 
  Country: US (occurrence: US)
  Receive Date: 20120307
  Receipt Date: 20121221
  Transmission Date: 20130627
  Serious: Yes (Hospitalization)
  Sender: FDA-Public Use
  Company Number: US-GLAXOSMITHKLINE-A0935986A

PATIENT
  Age: 77 Year
  Sex: Female

DRUGS (2)
  1. AVANDIA [Suspect]
     Indication: DIABETES MELLITUS
     Dosage: 8MG Per day
     Route: 048
     Dates: start: 20011120, end: 20070731
  2. ACTOS [Concomitant]
     Dates: start: 200503

REACTIONS (3)
  - Angina unstable [Not Recovered/Not Resolved]
  - Cerebrovascular accident [Unknown]
  - Cardiac failure congestive [Unknown]
